FAERS Safety Report 14807229 (Version 1)
Quarter: 2018Q2

REPORT INFORMATION
  Report Type: Spontaneous
  Country: FR (occurrence: FR)
  Receive Date: 20180425
  Receipt Date: 20180425
  Transmission Date: 20180711
  Serious: Yes (Other)
  Sender: FDA-Public Use
  Company Number: FR-ALLERGAN-1822861US

PATIENT
  Age: 66 Year
  Sex: Female
  Weight: 46 kg

DRUGS (1)
  1. FOSFOMYCIN TROMETHAMINE - BP [Suspect]
     Active Substance: FOSFOMYCIN TROMETHAMINE
     Indication: URINARY TRACT INFECTION
     Dosage: 1 DF, IN TOTAL
     Route: 048
     Dates: start: 20180319, end: 20180319

REACTIONS (12)
  - Pruritus [Recovering/Resolving]
  - Oral mucosal blistering [Recovering/Resolving]
  - Muscle spasms [Recovering/Resolving]
  - Stomatitis [Recovering/Resolving]
  - Suffocation feeling [Recovering/Resolving]
  - Mucous stools [Recovering/Resolving]
  - Vomiting [Recovering/Resolving]
  - Abdominal pain upper [Recovering/Resolving]
  - Abdominal pain [Recovering/Resolving]
  - Melaena [Recovering/Resolving]
  - Swollen tongue [Recovering/Resolving]
  - Oesophagitis [Recovering/Resolving]

NARRATIVE: CASE EVENT DATE: 20180319
